FAERS Safety Report 16952859 (Version 1)
Quarter: 2019Q4

REPORT INFORMATION
  Report Type: Spontaneous
  Country: US (occurrence: US)
  Receive Date: 20191023
  Receipt Date: 20191023
  Transmission Date: 20200122
  Serious: Yes (Life-Threatening, Hospitalization, Other)
  Sender: FDA-Public Use
  Company Number: US-ALKERMES INC.-ALK-2019-005542

PATIENT
  Sex: Male

DRUGS (1)
  1. VIVITROL [Suspect]
     Active Substance: NALTREXONE
     Indication: DRUG DEPENDENCE
     Dosage: 380 MG, QMO
     Route: 030

REACTIONS (10)
  - Overdose [Recovered/Resolved]
  - Unresponsive to stimuli [Recovered/Resolved]
  - Hospitalisation [Recovered/Resolved]
  - General physical health deterioration [Recovered/Resolved]
  - Cardiac arrest [Recovered/Resolved]
  - Near death experience [Recovered/Resolved]
  - Imprisonment [Recovered/Resolved]
  - Homeless [Recovered/Resolved]
  - Drug dependence [Not Recovered/Not Resolved]
  - Apathy [Recovered/Resolved]
